FAERS Safety Report 6994225-9 (Version None)
Quarter: 2010Q3

REPORT INFORMATION
  Report Type: 
  Country: None (occurrence: None)
  Receive Date: 20100917
  Receipt Date: 20090909
  Transmission Date: 20110219
  Serious: No
  Sender: FDA-Public Use
  Company Number: US-ASTRAZENECA-2009SE12318

PATIENT
  Age: 24 Year
  Sex: Male

DRUGS (2)
  1. SEROQUEL XR [Suspect]
     Indication: AFFECTIVE DISORDER
     Route: 048
     Dates: start: 20090202, end: 20090423
  2. SEROQUEL XR [Suspect]
     Route: 048
     Dates: start: 20090424

REACTIONS (2)
  - ERECTILE DYSFUNCTION [None]
  - PRIAPISM [None]
